FAERS Safety Report 15823790 (Version 2)
Quarter: 2019Q2

REPORT INFORMATION
  Report Type: Spontaneous
  Country: BR (occurrence: BR)
  Receive Date: 20190114
  Receipt Date: 20190516
  Transmission Date: 20190711
  Serious: Yes (Other)
  Sender: FDA-Public Use
  Company Number: BR-PFIZER INC-2019017357

PATIENT
  Age: 89 Year
  Sex: Female

DRUGS (1)
  1. LORAX (LORAZEPAM) [Suspect]
     Active Substance: LORAZEPAM
     Indication: SLEEP DISORDER
     Dosage: UNK
     Dates: start: 1989

REACTIONS (5)
  - Memory impairment [Unknown]
  - Off label use [Unknown]
  - Dementia Alzheimer^s type [Unknown]
  - Hallucination, visual [Unknown]
  - Product use issue [Unknown]
